FAERS Safety Report 8208246-1 (Version None)
Quarter: 2012Q1

REPORT INFORMATION
  Report Type: 
  Country: None (occurrence: None)
  Receive Date: 20120314
  Receipt Date: 20120308
  Transmission Date: 20120608
  Serious: Yes (Other)
  Sender: FDA-Public Use
  Company Number: PHHO2012US003966

PATIENT
  Sex: Female
  Weight: 51.3 kg

DRUGS (4)
  1. AFINITOR [Suspect]
     Indication: BREAST CANCER METASTATIC
     Dosage: 10 MG, QD
     Route: 048
     Dates: start: 20110520, end: 20120305
  2. IBUPROFEN [Concomitant]
     Dosage: UNK
  3. PREDNISONE [Concomitant]
     Dosage: UNK
  4. AROMASIN [Concomitant]
     Dosage: UNK

REACTIONS (1)
  - EJECTION FRACTION DECREASED [None]
